FAERS Safety Report 25141319 (Version 2)
Quarter: 2025Q2

REPORT INFORMATION
  Report Type: Spontaneous
  Country: JP (occurrence: JP)
  Receive Date: 20250331
  Receipt Date: 20250418
  Transmission Date: 20250716
  Serious: Yes (Death, Hospitalization)
  Sender: ROCHE
  Company Number: JP-CHUGAI-2025008775

PATIENT
  Age: 70 Year
  Sex: Female
  Weight: 52.8 kg

DRUGS (2)
  1. ENSPRYNG [Suspect]
     Active Substance: SATRALIZUMAB-MWGE
     Indication: Neuromyelitis optica spectrum disorder
     Route: 050
     Dates: start: 20230531, end: 20250129
  2. PREDNISOLONE [Concomitant]
     Active Substance: PREDNISOLONE
     Route: 050
     Dates: start: 20230126, end: 20250221

REACTIONS (3)
  - Cholangitis acute [Fatal]
  - Pyelonephritis acute [Fatal]
  - Device occlusion [Unknown]

NARRATIVE: CASE EVENT DATE: 20250220
